FAERS Safety Report 10045391 (Version 3)
Quarter: 2014Q2

REPORT INFORMATION
  Report Type: Spontaneous
  Country: JP (occurrence: JP)
  Receive Date: 20140328
  Receipt Date: 20140425
  Transmission Date: 20141212
  Serious: Yes (Hospitalization)
  Sender: FDA-Public Use
  Company Number: JP-TEVA-453955USA

PATIENT
  Age: 50 Year
  Sex: Male

DRUGS (13)
  1. BENDAMUSTINE [Suspect]
     Indication: B-CELL LYMPHOMA
     Route: 042
     Dates: start: 20130619
  2. BENDAMUSTINE [Suspect]
     Route: 042
     Dates: start: 20130822
  3. BENDAMUSTINE [Suspect]
     Route: 042
     Dates: start: 20130710
  4. BENDAMUSTINE [Suspect]
     Route: 042
     Dates: start: 20130801
  5. BENDAMUSTINE [Suspect]
     Route: 042
     Dates: start: 20130924
  6. RITUXIMAB [Suspect]
     Indication: B-CELL LYMPHOMA
     Route: 042
     Dates: start: 20130822
  7. RITUXIMAB [Suspect]
     Route: 042
     Dates: start: 20130612
  8. RITUXIMAB [Suspect]
     Route: 042
     Dates: start: 20130701
  9. RITUXIMAB [Suspect]
     Route: 042
     Dates: start: 20130710
  10. RITUXIMAB [Suspect]
     Route: 042
     Dates: start: 20130801
  11. RITUXIMAB [Suspect]
     Route: 042
     Dates: start: 20130920
  12. PREDNISOLONE [Suspect]
     Indication: B-CELL LYMPHOMA
     Route: 042
     Dates: start: 20130619
  13. LENOGRASTIM [Suspect]
     Indication: NEUTROPENIA
     Dates: start: 20130714

REACTIONS (4)
  - Sepsis [Recovering/Resolving]
  - Cytomegalovirus enterocolitis [Recovering/Resolving]
  - Neutropenia [Recovering/Resolving]
  - Liver disorder [Recovering/Resolving]
